FAERS Safety Report 13485560 (Version 1)
Quarter: 2017Q2

REPORT INFORMATION
  Report Type: Spontaneous
  Country: US (occurrence: US)
  Receive Date: 20170425
  Receipt Date: 20170425
  Transmission Date: 20170830
  Serious: No
  Sender: FDA-Public Use
  Company Number: US-PFIZER INC-2017178516

PATIENT
  Age: 59 Year
  Sex: Female
  Weight: 71.66 kg

DRUGS (1)
  1. THIOTHIXENE HCL [Suspect]
     Active Substance: THIOTHIXENE HYDROCHLORIDE
     Dosage: UNK, 1X/DAY (1-2 TABLETS A NIGHT)

REACTIONS (3)
  - Feeling abnormal [Unknown]
  - Drug ineffective [Unknown]
  - Hypersomnia [Unknown]
